FAERS Safety Report 5063370-X (Version None)
Quarter: 2006Q3

REPORT INFORMATION
  Report Type: 
  Country: None (occurrence: None)
  Receive Date: 20060727
  Receipt Date: 20060720
  Transmission Date: 20061208
  Serious: Yes (Hospitalization)
  Sender: FDA-Public Use
  Company Number: JP-ABBOTT-06P-087-0338512-00

PATIENT
  Age: 32 Year
  Sex: Female

DRUGS (2)
  1. CLARITHROMYCIN [Suspect]
     Indication: UPPER RESPIRATORY TRACT INFLAMMATION
     Route: 048
     Dates: start: 20060511, end: 20060511
  2. L-CARBOCISTEINE [Concomitant]
     Indication: UPPER RESPIRATORY TRACT INFLAMMATION
     Route: 048
     Dates: start: 20060511, end: 20060511

REACTIONS (1)
  - ASTHMA [None]
